FAERS Safety Report 23927318 (Version 1)
Quarter: 2024Q2

REPORT INFORMATION
  Report Type: Spontaneous
  Country: US (occurrence: US)
  Receive Date: 20240531
  Receipt Date: 20240531
  Transmission Date: 20240716
  Serious: No
  Sender: FDA-Public Use
  Company Number: US-Nephron Pharmaceuticals Corporation-2157648

PATIENT

DRUGS (1)
  1. ALBUTEROL SULFATE [Suspect]
     Active Substance: ALBUTEROL SULFATE

REACTIONS (5)
  - Oropharyngeal pain [Unknown]
  - Noninfective gingivitis [Unknown]
  - Stomatitis [Unknown]
  - Salivary hypersecretion [Unknown]
  - Dry mouth [Unknown]
